FAERS Safety Report 7658469-5 (Version None)
Quarter: 2011Q3

REPORT INFORMATION
  Report Type: 
  Country: None (occurrence: None)
  Receive Date: 20110805
  Receipt Date: 20110726
  Transmission Date: 20111222
  Serious: Yes (Other)
  Sender: FDA-Public Use
  Company Number: US-RB-027350-11

PATIENT
  Age: 52 Year
  Sex: Male

DRUGS (3)
  1. LISINOPRIL [Suspect]
     Dosage: 1 PILL EVERY NIGHT
     Route: 048
  2. MUCINEX DM [Suspect]
     Indication: COUGH
     Route: 048
     Dates: start: 20110723
  3. MUCINEX DM [Suspect]
     Indication: BRONCHIAL SECRETION RETENTION
     Route: 048
     Dates: start: 20110723

REACTIONS (2)
  - HYPERTENSION [None]
  - VISION BLURRED [None]
